FAERS Safety Report 17635472 (Version 4)
Quarter: 2020Q2

REPORT INFORMATION
  Report Type: Spontaneous
  Country: US (occurrence: US)
  Receive Date: 20200406
  Receipt Date: 20200602
  Transmission Date: 20200713
  Serious: Yes (Other)
  Sender: FDA-Public Use
  Company Number: US-GILEAD-2020-0456864

PATIENT
  Age: 37 Year
  Sex: Female

DRUGS (75)
  1. CHOLECALCIFEROL [Concomitant]
     Active Substance: CHOLECALCIFEROL
  2. PRAZOSIN. [Concomitant]
     Active Substance: PRAZOSIN
  3. LITHIUM. [Concomitant]
     Active Substance: LITHIUM
  4. TRAZODONE [Concomitant]
     Active Substance: TRAZODONE HYDROCHLORIDE
     Dosage: UNK
     Dates: start: 201405
  5. LAMICTAL [Concomitant]
     Active Substance: LAMOTRIGINE
  6. LOTRISONE [Concomitant]
     Active Substance: BETAMETHASONE DIPROPIONATE\CLOTRIMAZOLE
  7. HEPATITIS A VACCINE [Concomitant]
     Active Substance: HEPATITIS A VIRUS STRAIN HM175 ANTIGEN (FORMALDEHYDE INACTIVATED)
     Dosage: UNK
     Dates: start: 20080416, end: 20080416
  8. TWINRIX [Concomitant]
     Active Substance: HEPATITIS A VIRUS STRAIN HM175 ANTIGEN (FORMALDEHYDE INACTIVATED)\HEPATITIS B VIRUS SUBTYPE ADW2 HBSAG SURFACE PROTEIN ANTIGEN
     Dosage: UNK
     Dates: start: 20071211, end: 20071211
  9. PRAVASTATIN. [Concomitant]
     Active Substance: PRAVASTATIN
  10. REYATAZ [Suspect]
     Active Substance: ATAZANAVIR SULFATE
     Indication: HIV INFECTION
     Dosage: 300 MG, QD
     Route: 048
     Dates: start: 20070508
  11. NORVIR [Suspect]
     Active Substance: RITONAVIR
     Indication: HIV INFECTION
     Dosage: 100 MG, QD
     Route: 048
     Dates: start: 20070508
  12. COGENTIN [Concomitant]
     Active Substance: BENZTROPINE MESYLATE
  13. AMOXICILLIN AND CLAVULANATE POTASSIUM [Concomitant]
     Active Substance: AMOXICILLIN\CLAVULANATE POTASSIUM
  14. DIPHTHERIA TETANUS ACELLULAR PERTUSSIS [Concomitant]
     Dosage: UNK
     Dates: start: 20081210, end: 20081210
  15. PNEUMOCOCCAL VACCINE POLYSACCH 23V [Concomitant]
     Active Substance: PNEUMOCOCCAL VACCINE, POLYVALENT 23
     Dosage: UNK
     Dates: start: 20161109, end: 20161109
  16. NORVIR [Suspect]
     Active Substance: RITONAVIR
     Dosage: 100 MG, QD
     Route: 048
     Dates: start: 201211
  17. EPZICOM [Concomitant]
     Active Substance: ABACAVIR SULFATE\LAMIVUDINE
     Dosage: UNK
     Dates: start: 201211
  18. PRILOSEC [Concomitant]
     Active Substance: OMEPRAZOLE MAGNESIUM
     Indication: DYSPEPSIA
  19. VALTREX [Concomitant]
     Active Substance: VALACYCLOVIR HYDROCHLORIDE
  20. PHENERGAN [Concomitant]
     Active Substance: PROMETHAZINE HYDROCHLORIDE
  21. SINGULAIR [Concomitant]
     Active Substance: MONTELUKAST SODIUM
     Dosage: UNK
  22. DETROL LA [Concomitant]
     Active Substance: TOLTERODINE TARTRATE
  23. ALBUTEROL [SALBUTAMOL] [Concomitant]
     Active Substance: ALBUTEROL
  24. ERGOCALCIFEROL. [Concomitant]
     Active Substance: ERGOCALCIFEROL
  25. GABAPENTIN. [Concomitant]
     Active Substance: GABAPENTIN
  26. VITAMIN B6 [Concomitant]
     Active Substance: PYRIDOXINE HYDROCHLORIDE
  27. LORAZEPAM. [Concomitant]
     Active Substance: LORAZEPAM
  28. NICOTINE. [Concomitant]
     Active Substance: NICOTINE
  29. NAPROXEN. [Concomitant]
     Active Substance: NAPROXEN
  30. LOTRIMIN [MICONAZOLE NITRATE] [Concomitant]
  31. TYLENOL COLD [Concomitant]
  32. PNEUMOCOCCAL 13 VALENT VACCINE [Concomitant]
     Active Substance: PNEUMOCOCCAL 13-VALENT CONJUGATE VACCINE
     Dosage: UNK
     Dates: start: 20151020, end: 20151020
  33. PENICILLIN V POTASSIUM. [Concomitant]
     Active Substance: PENICILLIN V POTASSIUM
  34. TRUVADA [Suspect]
     Active Substance: EMTRICITABINE\TENOFOVIR DISOPROXIL FUMARATE
     Dosage: UNK
     Route: 065
     Dates: start: 2007, end: 2017
  35. KALETRA [Suspect]
     Active Substance: LOPINAVIR\RITONAVIR
     Indication: HIV INFECTION
     Dosage: 4 DOSAGE FORM, QD
     Route: 048
     Dates: start: 200810, end: 201211
  36. PREZISTA [Concomitant]
     Active Substance: DARUNAVIR ETHANOLATE
     Dosage: UNK
     Dates: start: 201211
  37. REQUIP [Concomitant]
     Active Substance: ROPINIROLE HYDROCHLORIDE
  38. ACETAMINOPHEN. [Concomitant]
     Active Substance: ACETAMINOPHEN
  39. RANITIDINE. [Concomitant]
     Active Substance: RANITIDINE
     Dosage: UNK
     Dates: end: 200810
  40. SOMA [Concomitant]
     Active Substance: CARISOPRODOL
  41. HYCET [Concomitant]
     Active Substance: ACETAMINOPHEN\HYDROCODONE BITARTRATE
     Dosage: UNK
     Dates: start: 20150806
  42. CLARITIN [Concomitant]
     Active Substance: LORATADINE
  43. SEPTRA DS [Concomitant]
     Active Substance: SULFAMETHOXAZOLE\TRIMETHOPRIM
  44. DARVOCET [DEXTROPROPOXYPHENE NAPSILATE;PARACETAMOL] [Concomitant]
  45. INFLUENZA VACCINE [Concomitant]
     Active Substance: INFLUENZA VIRUS VACCINE
  46. TRUVADA [Suspect]
     Active Substance: EMTRICITABINE\TENOFOVIR DISOPROXIL FUMARATE
     Indication: HIV INFECTION
     Dosage: 1 DOSAGE FORM, QD
     Route: 048
     Dates: start: 20070508, end: 201211
  47. WELLBUTRIN [Concomitant]
     Active Substance: BUPROPION HYDROCHLORIDE
     Dosage: UNK
     Dates: end: 201211
  48. HALOPERIDOL. [Concomitant]
     Active Substance: HALOPERIDOL
  49. LATUDA [Concomitant]
     Active Substance: LURASIDONE HYDROCHLORIDE
     Dosage: UNK
     Dates: end: 201511
  50. EUCERIN [PARAFFIN, LIQUID;PETROLATUM;WOOL FAT] [Concomitant]
  51. VICODIN [Concomitant]
     Active Substance: ACETAMINOPHEN\HYDROCODONE BITARTRATE
  52. COMPAZINE [Concomitant]
     Active Substance: PROCHLORPERAZINE MALEATE
  53. KENALOG ORABASE [Concomitant]
     Active Substance: TRIAMCINOLONE ACETONIDE
  54. STRIBILD [Concomitant]
     Active Substance: COBICISTAT\ELVITEGRAVIR\EMTRICITABINE\TENOFOVIR DISOPROXIL FUMARATE
     Dosage: UNK
     Dates: start: 201704, end: 201704
  55. PRILOSEC [Concomitant]
     Active Substance: OMEPRAZOLE MAGNESIUM
     Indication: OESOPHAGITIS
     Dosage: UNK
     Dates: start: 200810
  56. LEXAPRO [Concomitant]
     Active Substance: ESCITALOPRAM OXALATE
  57. ALUMINUM MAGNESIUM HYDROXIDE [Concomitant]
  58. NICODERM CQ [Concomitant]
     Active Substance: NICOTINE
  59. TRAMADOL. [Concomitant]
     Active Substance: TRAMADOL
  60. GEODON [Concomitant]
     Active Substance: ZIPRASIDONE HYDROCHLORIDE\ZIPRASIDONE MESYLATE
  61. ADVAIR HFA [Concomitant]
     Active Substance: FLUTICASONE PROPIONATE\SALMETEROL XINAFOATE
     Dosage: UNK
     Dates: end: 201301
  62. EXCEDRIN [Concomitant]
     Active Substance: ACETAMINOPHEN\ASPIRIN\CAFFEINE
  63. PNEUMOCOCCAL VACCINE POLYSACCH 23V [Concomitant]
     Active Substance: PNEUMOCOCCAL VACCINE, POLYVALENT 23
     Dosage: UNK
     Dates: start: 20120816, end: 20120816
  64. TYLENOL WITH CODEINE [Concomitant]
     Active Substance: ACETAMINOPHEN\CODEINE PHOSPHATE
  65. SYMBICORT [Concomitant]
     Active Substance: BUDESONIDE\FORMOTEROL FUMARATE DIHYDRATE
     Dosage: UNK
     Dates: start: 201301
  66. SIMETHICONE (DIMETHICONE) [Concomitant]
     Active Substance: DIMETHICONE
  67. MULTIVITAMINS [VITAMINS NOS] [Concomitant]
     Active Substance: VITAMINS
  68. FLEXERIL [Concomitant]
     Active Substance: CYCLOBENZAPRINE HYDROCHLORIDE
  69. HEPATITIS A VACCINE [Concomitant]
     Active Substance: HEPATITIS A VIRUS STRAIN HM175 ANTIGEN (FORMALDEHYDE INACTIVATED)
     Dosage: UNK
     Dates: start: 20070620, end: 20070620
  70. FLUCONAZOLE. [Concomitant]
     Active Substance: FLUCONAZOLE
  71. GENVOYA [Concomitant]
     Active Substance: COBICISTAT\ELVITEGRAVIR\EMTRICITABINE\TENOFOVIR ALAFENAMIDE FUMARATE
  72. SEROQUEL [Concomitant]
     Active Substance: QUETIAPINE FUMARATE
  73. ISONIAZID. [Concomitant]
     Active Substance: ISONIAZID
  74. IBUPROFEN. [Concomitant]
     Active Substance: IBUPROFEN
  75. PNEUMOCOCCAL VACCINE POLYSACCH 23V [Concomitant]
     Active Substance: PNEUMOCOCCAL VACCINE, POLYVALENT 23
     Dosage: UNK
     Dates: start: 20070620, end: 20070620

REACTIONS (6)
  - Anogenital warts [Recovered/Resolved]
  - Kidney infection [Recovered/Resolved]
  - Fracture [Not Recovered/Not Resolved]
  - Viral load increased [Unknown]
  - Renal failure [Recovered/Resolved]
  - Blood HIV RNA increased [Unknown]

NARRATIVE: CASE EVENT DATE: 200705
